FAERS Safety Report 10561714 (Version 3)
Quarter: 2015Q1

REPORT INFORMATION
  Report Type: Report from Study
  Country: TR (occurrence: TR)
  Receive Date: 20141103
  Receipt Date: 20150202
  Transmission Date: 20150720
  Serious: Yes (Hospitalization, Other)
  Sender: FDA-Public Use
  Company Number: TR-ABBVIE-14K-161-1300426-00

PATIENT
  Age: 66 Year
  Sex: Male
  Weight: 90 kg

DRUGS (6)
  1. ENDOL [Concomitant]
     Active Substance: INDOMETHACIN
     Indication: RHEUMATOID ARTHRITIS
     Route: 048
     Dates: start: 20140620
  2. HUMIRA [Suspect]
     Active Substance: ADALIMUMAB
     Indication: RHEUMATOID ARTHRITIS
     Route: 058
     Dates: start: 20140813, end: 20141026
  3. HUMIRA [Suspect]
     Active Substance: ADALIMUMAB
     Route: 058
     Dates: start: 20141212
  4. INH [Concomitant]
     Active Substance: ISONIAZID
     Indication: PROPHYLAXIS
  5. HIPERSAR [Concomitant]
     Indication: HYPERTENSION
     Dates: start: 20120610, end: 20141026
  6. INH [Concomitant]
     Active Substance: ISONIAZID
     Indication: TUBERCULOSIS
     Dates: start: 20140715

REACTIONS (2)
  - Arteriosclerosis coronary artery [Recovered/Resolved]
  - Tachycardia [Recovered/Resolved]

NARRATIVE: CASE EVENT DATE: 20141024
